FAERS Safety Report 8827357 (Version 1)
Quarter: 2012Q4

REPORT INFORMATION
  Report Type: 
  Country: US (occurrence: US)
  Receive Date: 20121008
  Receipt Date: 20121008
  Transmission Date: 20130627
  Serious: Yes (Hospitalization)
  Sender: FDA-Public Use
  Company Number: US-JNJFOC-20121001343

PATIENT
  Age: 32 Year
  Sex: Male

DRUGS (3)
  1. PREZISTA [Suspect]
     Indication: HIV INFECTION
     Dosage: 800 mg/400mg
     Route: 048
     Dates: start: 2009
  2. TRUVADA [Concomitant]
     Indication: HIV INFECTION
     Dosage: 800 mg/400mg
     Route: 065
  3. NORVIR [Concomitant]
     Indication: HIV INFECTION
     Dosage: 800 mg/400mg
     Route: 065

REACTIONS (1)
  - Electrocardiogram ST segment elevation [Unknown]
